FAERS Safety Report 6455242-0 (Version None)
Quarter: 2009Q4

REPORT INFORMATION
  Report Type: 
  Country: None (occurrence: None)
  Receive Date: 20091119
  Receipt Date: 20091104
  Transmission Date: 20100525
  Serious: Yes (Death)
  Sender: FDA-Public Use
  Company Number: KV200900713

PATIENT
  Age: 78 Year
  Sex: Male
  Weight: 77.3 kg

DRUGS (9)
  1. MORPHINE SULFATE [Suspect]
     Indication: DRUG USE FOR UNKNOWN INDICATION
     Dosage: 15 MG, 1-2 TABS EVERY 2-4 HOUR PRN, ORAL
     Route: 048
  2. CELEBREX [Concomitant]
  3. FENTANYL-100 [Concomitant]
  4. PERCOCET /00446701/ (OXYCODOEN HYDROCHLORIDE, OXYCODONE TEREOHTHALATE, [Concomitant]
  5. LUNESTA [Concomitant]
  6. MIRTAZAPINE [Concomitant]
  7. NEXIUM [Concomitant]
  8. OXYCODONE HCL ER (OXYCODONE HYDROCHLORIDE) [Concomitant]
  9. LEXAPRO (ESCITABLOPRAM OXATE) [Concomitant]

REACTIONS (2)
  - CARDIO-RESPIRATORY ARREST [None]
  - MALIGNANT MELANOMA STAGE IV [None]
